FAERS Safety Report 21633769 (Version 1)
Quarter: 2022Q4

REPORT INFORMATION
  Report Type: Spontaneous
  Country: US (occurrence: None)
  Receive Date: 20221123
  Receipt Date: 20221123
  Transmission Date: 20230113
  Serious: Yes (Other)
  Sender: FDA-Public Use
  Company Number: None

PATIENT
  Age: 49 Year
  Sex: Male

DRUGS (1)
  1. LANREOTIDE [Suspect]
     Active Substance: LANREOTIDE
     Indication: Gastrointestinal haemorrhage
     Dosage: 120 MG  MONTHLY INTRAMUSCULAR
     Route: 030
     Dates: start: 20220820

REACTIONS (9)
  - Product use complaint [None]
  - Device difficult to use [None]
  - Syringe issue [None]
  - Product substitution issue [None]
  - Syringe issue [None]
  - Device malfunction [None]
  - Injection site pain [None]
  - Needle issue [None]
  - Incorrect dose administered by device [None]

NARRATIVE: CASE EVENT DATE: 20221115
